FAERS Safety Report 20882394 (Version 1)
Quarter: 2022Q2

REPORT INFORMATION
  Report Type: Spontaneous
  Country: US (occurrence: US)
  Receive Date: 20220527
  Receipt Date: 20220527
  Transmission Date: 20220720
  Serious: No
  Sender: FDA-Public Use
  Company Number: US-HORIZON THERAPEUTICS-HZN-2021-006946

PATIENT
  Age: 66 Year
  Sex: Female

DRUGS (1)
  1. RAYOS [Suspect]
     Active Substance: PREDNISONE
     Indication: Psoriatic arthropathy
     Dosage: 5 MG (2 TABLETS) AT BED TIME
     Route: 048

REACTIONS (4)
  - Pain [Unknown]
  - Gait inability [Unknown]
  - Product dose omission issue [Unknown]
  - Oedema [Unknown]

NARRATIVE: CASE EVENT DATE: 20220316
